FAERS Safety Report 6539171-X (Version None)
Quarter: 2010Q1

REPORT INFORMATION
  Report Type: 
  Country: None (occurrence: None)
  Receive Date: 20100115
  Receipt Date: 20100112
  Transmission Date: 20100710
  Serious: Yes (Other)
  Sender: FDA-Public Use
  Company Number: JP-BAYER-201010124BYL

PATIENT
  Age: 66 Year
  Sex: Male
  Weight: 58 kg

DRUGS (12)
  1. NEXAVAR [Suspect]
     Indication: RENAL CELL CARCINOMA
     Dosage: TOTAL DAILY DOSE: 800 MG  UNIT DOSE: 200 MG
     Route: 048
     Dates: start: 20090828, end: 20090904
  2. NEXAVAR [Suspect]
     Dosage: UNIT DOSE: 200 MG
     Route: 048
     Dates: start: 20090912, end: 20090916
  3. LOXONIN [Concomitant]
     Dosage: TOTAL DAILY DOSE: 60 MG  UNIT DOSE: 60 MG
     Route: 048
     Dates: start: 20090828, end: 20090928
  4. NORVASC [Concomitant]
     Dosage: TOTAL DAILY DOSE: 2.5 MG  UNIT DOSE: 2.5 MG
     Route: 048
     Dates: start: 20090828, end: 20090928
  5. KERATINAMIN [Concomitant]
     Route: 061
     Dates: start: 20090828, end: 20090928
  6. ACRINOL [Concomitant]
     Route: 061
     Dates: start: 20090828, end: 20090928
  7. NOVAMIN [Concomitant]
     Dosage: TOTAL DAILY DOSE: 15 MG  UNIT DOSE: 5 MG
     Route: 048
     Dates: start: 20090828, end: 20090928
  8. PURSENNID [Concomitant]
     Dosage: TOTAL DAILY DOSE: 12 MG  UNIT DOSE: 12 MG
     Route: 048
     Dates: start: 20090828, end: 20090928
  9. MAGMITT [Concomitant]
     Dosage: TOTAL DAILY DOSE: 330 MG  UNIT DOSE: 330 MG
     Route: 048
     Dates: start: 20090828, end: 20090928
  10. TAKEPRON [Concomitant]
     Dosage: TOTAL DAILY DOSE: 30 MG  UNIT DOSE: 30 MG
     Route: 048
     Dates: start: 20090828, end: 20090928
  11. OXYCONTIN [Concomitant]
     Dosage: TOTAL DAILY DOSE: 10 MG  UNIT DOSE: 5 MG
     Route: 048
     Dates: start: 20090828, end: 20090928
  12. OXINORM [Concomitant]
     Route: 048
     Dates: start: 20090828, end: 20090928

REACTIONS (1)
  - LIVER DISORDER [None]
